FAERS Safety Report 8173345-X (Version None)
Quarter: 2012Q1

REPORT INFORMATION
  Report Type: 
  Country: None (occurrence: None)
  Receive Date: 20120229
  Receipt Date: 20120217
  Transmission Date: 20120608
  Serious: Yes (Hospitalization)
  Sender: FDA-Public Use
  Company Number: DE-MEDIMMUNE-MEDI-0015032

PATIENT
  Sex: Female

DRUGS (3)
  1. NOSEDROPS [Concomitant]
  2. SYNAGIS [Suspect]
     Route: 030
     Dates: start: 20111007, end: 20111206
  3. ALBUTEROL [Concomitant]

REACTIONS (2)
  - BRONCHITIS [None]
  - RESPIRATORY SYNCYTIAL VIRUS INFECTION [None]
